FAERS Safety Report 7312427-9 (Version None)
Quarter: 2011Q1

REPORT INFORMATION
  Report Type: 
  Country: None (occurrence: None)
  Receive Date: 20110224
  Receipt Date: 20110214
  Transmission Date: 20110831
  Serious: Yes (Hospitalization, Other)
  Sender: FDA-Public Use
  Company Number: BR-SANOFI-AVENTIS-2011SA003662

PATIENT
  Age: 67 Year
  Sex: Male
  Weight: 81 kg

DRUGS (3)
  1. ENALAPRIL MALEATE [Concomitant]
     Indication: BLOOD PRESSURE
     Route: 048
     Dates: start: 20060101
  2. APIDRA SOLOSTAR [Suspect]
     Dosage: 40 IU IN FASTING AND 20 IU PRN
     Route: 058
  3. SOLOSTAR [Suspect]

REACTIONS (6)
  - HYPERHIDROSIS [None]
  - FEELING ABNORMAL [None]
  - BLOOD GLUCOSE INCREASED [None]
  - HYPOGLYCAEMIA [None]
  - FEELING COLD [None]
  - LOCALISED INFECTION [None]
